FAERS Safety Report 16383790 (Version 1)
Quarter: 2019Q2

REPORT INFORMATION
  Report Type: Spontaneous
  Country: US (occurrence: US)
  Receive Date: 20190531
  Receipt Date: 20190531
  Transmission Date: 20190711
  Serious: Yes (Other)
  Sender: FDA-Public Use
  Company Number: None

PATIENT
  Age: 63 Year
  Sex: Male
  Weight: 62.1 kg

DRUGS (13)
  1. INLYTA [Suspect]
     Active Substance: AXITINIB
     Indication: RENAL CANCER
     Route: 048
     Dates: start: 20190320, end: 20190408
  2. TRADJENTA [Concomitant]
     Active Substance: LINAGLIPTIN
  3. PRAVASTATIN SODIUM. [Concomitant]
     Active Substance: PRAVASTATIN SODIUM
  4. CYCLOBENZAPRINE HCL [Concomitant]
     Active Substance: CYCLOBENZAPRINE HYDROCHLORIDE
  5. NORCO [Concomitant]
     Active Substance: ACETAMINOPHEN\HYDROCODONE BITARTRATE
  6. CENTRUM SILVER [Concomitant]
     Active Substance: MINERALS\VITAMINS
  7. NOVOLIN R [Concomitant]
     Active Substance: INSULIN HUMAN
  8. INLYTA [Suspect]
     Active Substance: AXITINIB
     Indication: BONE CANCER
     Route: 048
     Dates: start: 20190320, end: 20190408
  9. SENNA LAXATIVE [Concomitant]
     Active Substance: SENNOSIDES
  10. FOLIC ACID. [Concomitant]
     Active Substance: FOLIC ACID
  11. TOUJEO [Concomitant]
     Active Substance: INSULIN GLARGINE
  12. MORPHINE SULFATE ER [Concomitant]
     Active Substance: MORPHINE SULFATE
  13. ELIQUIS [Concomitant]
     Active Substance: APIXABAN

REACTIONS (1)
  - Disease progression [None]
